FAERS Safety Report 22304806 (Version 1)
Quarter: 2023Q2

REPORT INFORMATION
  Report Type: Report from Study
  Country: DE (occurrence: DE)
  Receive Date: 20230510
  Receipt Date: 20230510
  Transmission Date: 20230721
  Serious: Yes (Other)
  Sender: FDA-Public Use
  Company Number: DE-002147023-NVSC2023DE105584

PATIENT
  Sex: Female

DRUGS (16)
  1. UNSPECIFIED INGREDIENT [Suspect]
     Active Substance: UNSPECIFIED INGREDIENT
     Indication: Foetal exposure during pregnancy
     Dosage: UNK
     Route: 065
  2. METHOTREXATE [Suspect]
     Active Substance: METHOTREXATE
     Indication: Foetal exposure during pregnancy
     Dosage: MATERNAL DOSE: 20 MG
     Route: 064
  3. METHOTREXATE [Suspect]
     Active Substance: METHOTREXATE
     Dosage: MATERNAL DOSE: 20 MG
     Route: 064
  4. METHOTREXATE [Suspect]
     Active Substance: METHOTREXATE
     Dosage: MATERNAL DOSE: 25 MG
     Route: 064
  5. METHOTREXATE [Suspect]
     Active Substance: METHOTREXATE
     Dosage: MATERNAL DOSE: 25 MG
     Route: 064
  6. METHOTREXATE [Suspect]
     Active Substance: METHOTREXATE
     Dosage: MATERNAL DOSE: 30 MG
     Route: 064
  7. METHOTREXATE [Suspect]
     Active Substance: METHOTREXATE
     Dosage: MATERNAL DOSE: 15 MG
     Route: 064
  8. METHOTREXATE [Suspect]
     Active Substance: METHOTREXATE
     Dosage: MATERNAL DOSE: 15 MG
     Route: 064
  9. SULFASALAZINE [Suspect]
     Active Substance: SULFASALAZINE
     Indication: Foetal exposure during pregnancy
     Dosage: MATERNAL DOSE: 2000 MG
     Route: 064
  10. SULFASALAZINE [Suspect]
     Active Substance: SULFASALAZINE
     Dosage: MATERNAL DOSE: 2000 MG
     Route: 064
  11. SULFASALAZINE [Suspect]
     Active Substance: SULFASALAZINE
     Dosage: MATERNAL DOSE: 2000 MG
     Route: 064
  12. CIMZIA [Suspect]
     Active Substance: CERTOLIZUMAB PEGOL
     Indication: Foetal exposure during pregnancy
     Dosage: MATERNAL DOSE: 200 MG
     Route: 064
  13. CIMZIA [Suspect]
     Active Substance: CERTOLIZUMAB PEGOL
     Dosage: UNK
     Route: 064
  14. HYDROXYCHLOROQUINE [Suspect]
     Active Substance: HYDROXYCHLOROQUINE
     Indication: Foetal exposure during pregnancy
     Dosage: MATERNAL DOSE: 250 MG
     Route: 064
  15. HYDROXYCHLOROQUINE [Suspect]
     Active Substance: HYDROXYCHLOROQUINE
     Dosage: MATERNAL DOSE: 250 MG
     Route: 064
  16. HYDROXYCHLOROQUINE [Suspect]
     Active Substance: HYDROXYCHLOROQUINE
     Dosage: MATERNAL DOSE: 250 MG
     Route: 064

REACTIONS (2)
  - Premature baby [Unknown]
  - Foetal exposure during pregnancy [Unknown]

NARRATIVE: CASE EVENT DATE: 20121014
